FAERS Safety Report 23920940 (Version 1)
Quarter: 2024Q2

REPORT INFORMATION
  Report Type: Spontaneous
  Country: US (occurrence: None)
  Receive Date: 20240529
  Receipt Date: 20240529
  Transmission Date: 20240715
  Serious: Yes (unspecified)
  Sender: FDA-Public Use
  Company Number: None

PATIENT
  Age: 53 Year
  Sex: Male
  Weight: 101.25 kg

DRUGS (1)
  1. METOPROLOL [Suspect]
     Active Substance: METOPROLOL
     Dosage: FREQUENCY : TWICE A DAY;?
     Route: 048
     Dates: start: 20191006, end: 20240412

REACTIONS (2)
  - Peyronie^s disease [None]
  - Autonomic dysreflexia [None]

NARRATIVE: CASE EVENT DATE: 20231012
